FAERS Safety Report 25615865 (Version 2)
Quarter: 2025Q3

REPORT INFORMATION
  Report Type: Spontaneous
  Country: EU (occurrence: EU)
  Receive Date: 20250729
  Receipt Date: 20250802
  Transmission Date: 20251020
  Serious: Yes (Disabling, Other)
  Sender: AUROBINDO
  Company Number: EU-SA-2025SA167764

PATIENT
  Age: 82 Year
  Sex: Female

DRUGS (1)
  1. AMIODARONE [Suspect]
     Active Substance: AMIODARONE
     Indication: Atrial flutter
     Dosage: 200 MILLIGRAM, ONCE A DAY
     Route: 065

REACTIONS (2)
  - Skin hyperpigmentation [Unknown]
  - Argyria [Unknown]

NARRATIVE: CASE EVENT DATE: 20220101
